FAERS Safety Report 16045635 (Version 1)
Quarter: 2019Q1

REPORT INFORMATION
  Report Type: Spontaneous
  Country: ES (occurrence: ES)
  Receive Date: 20190307
  Receipt Date: 20190307
  Transmission Date: 20190418
  Serious: Yes (Other)
  Sender: FDA-Public Use
  Company Number: ES-LUPIN PHARMACEUTICALS INC.-2019-01332

PATIENT
  Age: 33 Year
  Sex: Female

DRUGS (3)
  1. FERROUS SULFATE. [Interacting]
     Active Substance: FERROUS SULFATE
     Indication: IRON DEFICIENCY ANAEMIA
     Dosage: 80 MILLIGRAM, QD
     Route: 065
  2. OMEPRAZOLE. [Suspect]
     Active Substance: OMEPRAZOLE
     Indication: DYSPEPSIA
     Dosage: 40 MILLIGRAM, QD
     Route: 065
  3. OMEPRAZOLE. [Interacting]
     Active Substance: OMEPRAZOLE
     Dosage: 20 MILLIGRAM, QD (INTERMITTENTLY)
     Route: 065

REACTIONS (6)
  - Achlorhydria [Recovered/Resolved]
  - Therapeutic response changed [Recovered/Resolved]
  - Drug interaction [Unknown]
  - Vitamin B12 deficiency [Recovered/Resolved]
  - Malabsorption [Recovered/Resolved]
  - Prescription drug used without a prescription [Unknown]
